FAERS Safety Report 16126420 (Version 10)
Quarter: 2019Q3

REPORT INFORMATION
  Report Type: Report from Study
  Country: CZ (occurrence: CZ)
  Receive Date: 20190328
  Receipt Date: 20190930
  Transmission Date: 20191004
  Serious: Yes (Hospitalization)
  Sender: FDA-Public Use
  Company Number: CZ-ROCHE-2289613

PATIENT
  Age: 68 Year
  Sex: Male
  Weight: 91 kg

DRUGS (14)
  1. LACTULOSE. [Concomitant]
     Active Substance: LACTULOSE
     Dosage: DOSE 1, UNIT OTHER
     Route: 048
     Dates: start: 20180806
  2. DENOSUMAB [Concomitant]
     Active Substance: DENOSUMAB
     Route: 058
     Dates: start: 20180626
  3. ZOLADEX [Concomitant]
     Active Substance: GOSERELIN ACETATE
     Route: 058
     Dates: start: 20180329
  4. DEXONA [DEXAMETHASONE] [Concomitant]
     Route: 042
     Dates: start: 20190624, end: 20190624
  5. ZOLADEX [Concomitant]
     Active Substance: GOSERELIN ACETATE
     Route: 058
     Dates: start: 201502
  6. PREDNISON [Concomitant]
     Active Substance: PREDNISONE
     Route: 048
     Dates: start: 20190418
  7. PREDNISON [Concomitant]
     Active Substance: PREDNISONE
     Route: 048
     Dates: start: 20180629, end: 20190417
  8. PREDNISON [Concomitant]
     Active Substance: PREDNISONE
     Route: 048
     Dates: start: 20180702
  9. AGEN [Concomitant]
     Active Substance: AMLODIPINE BESYLATE
     Route: 048
  10. ATEZOLIZUMAB. [Suspect]
     Active Substance: ATEZOLIZUMAB
     Indication: HORMONE-REFRACTORY PROSTATE CANCER
     Dosage: MOST RESENT DOSE ON PRIOR TO SAE ONSET: 28/FEB/2019 AT 11.05
     Route: 042
     Dates: start: 20180423
  11. DEXONA [DEXAMETHASONE] [Concomitant]
     Route: 042
     Dates: start: 20190228, end: 20190228
  12. ENZALUTAMIDE [Suspect]
     Active Substance: ENZALUTAMIDE
     Indication: HORMONE-REFRACTORY PROSTATE CANCER
     Dosage: MOST RESENT DOSE ON PRIOR TO SAE ONSET: 20/MAR/2019 AT 7.05
     Route: 048
     Dates: start: 20180423
  13. NOVALGIN (METAMIZOLE SODIUM) [Concomitant]
     Active Substance: METAMIZOLE SODIUM
     Route: 048
     Dates: start: 20180629
  14. HELICID [OMEPRAZOLE] [Concomitant]
     Route: 048
     Dates: start: 20180629

REACTIONS (2)
  - Fatigue [Recovered/Resolved]
  - Fatigue [Not Recovered/Not Resolved]

NARRATIVE: CASE EVENT DATE: 20190320
